FAERS Safety Report 12964513 (Version 1)
Quarter: 2016Q4

REPORT INFORMATION
  Report Type: Report from Study
  Country: CZ (occurrence: CZ)
  Receive Date: 20161122
  Receipt Date: 20161122
  Transmission Date: 20170207
  Serious: Yes (Other)
  Sender: FDA-Public Use
  Company Number: CZ-BAYER-2016-219721

PATIENT
  Age: 29 Year
  Sex: Female
  Weight: 75 kg

DRUGS (1)
  1. MIRENA [Suspect]
     Active Substance: LEVONORGESTREL
     Dosage: 20 MCG/24HR, CONT
     Route: 015
     Dates: start: 20160719, end: 20160801

REACTIONS (6)
  - Uterine inflammation [Recovered/Resolved]
  - Vaginal haemorrhage [Recovered/Resolved]
  - Salpingitis [Not Recovered/Not Resolved]
  - Menstruation irregular [Recovered/Resolved]
  - Noninfective oophoritis [Not Recovered/Not Resolved]
  - Abdominal pain lower [Recovered/Resolved]

NARRATIVE: CASE EVENT DATE: 20160723
